FAERS Safety Report 12195116 (Version 2)
Quarter: 2016Q1

REPORT INFORMATION
  Report Type: Spontaneous
  Country: CN (occurrence: CN)
  Receive Date: 20160321
  Receipt Date: 20160324
  Transmission Date: 20160526
  Serious: Yes (Hospitalization)
  Sender: FDA-Public Use
  Company Number: CN-VIIV HEALTHCARE LIMITED-CN2016GSK036631

PATIENT
  Age: 41 Year
  Sex: Male
  Weight: 50 kg

DRUGS (1)
  1. HEPTODIN [Suspect]
     Active Substance: LAMIVUDINE
     Indication: HEPATITIS B
     Dosage: 100 MG, QD
     Route: 048

REACTIONS (6)
  - Suspected counterfeit product [Unknown]
  - Hepatic function abnormal [Not Recovered/Not Resolved]
  - Palpitations [Not Recovered/Not Resolved]
  - Hepatic pain [Not Recovered/Not Resolved]
  - Viral infection [Not Recovered/Not Resolved]
  - Pyrexia [Not Recovered/Not Resolved]

NARRATIVE: CASE EVENT DATE: 201601
